FAERS Safety Report 5496638-3 (Version None)
Quarter: 2007Q4

REPORT INFORMATION
  Report Type: 
  Country: None (occurrence: None)
  Receive Date: 20071025
  Receipt Date: 20070627
  Transmission Date: 20080405
  Serious: No
  Sender: FDA-Public Use
  Company Number: A0660342A

PATIENT
  Age: 81 Year
  Sex: Male

DRUGS (12)
  1. ADVAIR DISKUS 100/50 [Suspect]
     Indication: ASTHMA
     Dosage: 1PUFF TWICE PER DAY
     Route: 055
  2. ALBUTEROL [Concomitant]
  3. LABETALOL HCL [Concomitant]
  4. LORAZEPAM [Concomitant]
  5. FLOMAX [Concomitant]
  6. FERROUS SULFATE TAB [Concomitant]
  7. CASODEX [Concomitant]
  8. CENTRUM [Concomitant]
  9. XALATAN [Concomitant]
  10. NASACORT [Concomitant]
  11. OXYCONTIN [Concomitant]
  12. BENICAR [Concomitant]

REACTIONS (1)
  - DRUG INEFFECTIVE [None]
